FAERS Safety Report 23115344 (Version 1)
Quarter: 2023Q4

REPORT INFORMATION
  Report Type: Spontaneous
  Country: US (occurrence: None)
  Receive Date: 20231026
  Receipt Date: 20231026
  Transmission Date: 20240109
  Serious: Yes (Life-Threatening, Hospitalization)
  Sender: FDA-Public Use
  Company Number: None

PATIENT
  Age: 75 Year
  Sex: Female

DRUGS (1)
  1. APIXABAN [Suspect]
     Active Substance: APIXABAN

REACTIONS (7)
  - Therapy interrupted [None]
  - Hernia repair [None]
  - Acute respiratory failure [None]
  - Pneumonia aspiration [None]
  - Occult blood positive [None]
  - Anaemia [None]
  - Haematemesis [None]

NARRATIVE: CASE EVENT DATE: 20230624
